FAERS Safety Report 9305426 (Version 8)
Quarter: 2013Q3

REPORT INFORMATION
  Report Type: Report from Study
  Country: US (occurrence: US)
  Receive Date: 20130523
  Receipt Date: 20130826
  Transmission Date: 20140515
  Serious: Yes (Other)
  Sender: FDA-Public Use
  Company Number: US-VERTEX PHARMACEUTICALS INC-2013-006306

PATIENT
  Age: 56 Year
  Sex: Male
  Weight: 88 kg

DRUGS (14)
  1. VX-950 (TELAPREVIR) [Suspect]
     Indication: HEPATITIS C
     Dosage: 750 MG, TID
     Route: 048
     Dates: start: 20130518
  2. PEGASYS [Suspect]
     Indication: HEPATITIS C
     Dosage: 180 ?G, QW
     Route: 058
     Dates: start: 20130518
  3. PEGASYS [Suspect]
     Dosage: 135 ?G, QW
     Route: 058
     Dates: start: 20130627
  4. RIBAVIRIN [Suspect]
     Indication: HEPATITIS C
     Dosage: 600 MG, BID
     Route: 048
     Dates: start: 20130518
  5. METFORMIN HCL [Concomitant]
     Indication: DIABETES MELLITUS
     Dosage: 1000 MG, BID
     Route: 048
     Dates: start: 20071228
  6. VICTOZA [Concomitant]
     Indication: DIABETES MELLITUS
     Dosage: 18 MG/3 ML, AS DIRECTED
     Route: 058
     Dates: start: 20130121
  7. ALEVE [Concomitant]
     Indication: PAIN
     Dosage: UNK, PRN
     Route: 048
  8. CENTRUM SILVER [Concomitant]
     Dosage: 1 DF, QD
     Route: 048
     Dates: start: 20111107
  9. GLYBURIDE [Concomitant]
     Dosage: 10 MG, BID
     Route: 048
     Dates: start: 20071228
  10. LEVITRA [Concomitant]
     Dosage: 20 MG, AS DIRECTED
     Route: 048
     Dates: start: 20090924
  11. LANCETS [Concomitant]
  12. TRILYTE [Concomitant]
     Dosage: 420 G, UNK
     Route: 048
     Dates: start: 20130306
  13. SUPREP BOWEL PREP [Concomitant]
     Indication: BOWEL PREPARATION
     Dosage: AS DIRECTED
     Dates: start: 20121015
  14. SUPREP BOWEL PREP [Concomitant]
     Dosage: AS DIRECTED
     Dates: start: 20130301

REACTIONS (30)
  - Blood glucose increased [Not Recovered/Not Resolved]
  - Onychomycosis [Unknown]
  - Tinea pedis [Unknown]
  - Influenza like illness [Not Recovered/Not Resolved]
  - Hyperlipidaemia [Unknown]
  - Irritability [Not Recovered/Not Resolved]
  - Somnolence [Unknown]
  - Decreased appetite [Unknown]
  - Headache [Not Recovered/Not Resolved]
  - Weight decreased [Not Recovered/Not Resolved]
  - Chills [Not Recovered/Not Resolved]
  - Cough [Not Recovered/Not Resolved]
  - Malaise [Not Recovered/Not Resolved]
  - Asthenia [Not Recovered/Not Resolved]
  - Fatigue [Not Recovered/Not Resolved]
  - Asthenia [Not Recovered/Not Resolved]
  - Presyncope [Not Recovered/Not Resolved]
  - Rash macular [Recovered/Resolved]
  - Dry skin [Not Recovered/Not Resolved]
  - Vomiting [Not Recovered/Not Resolved]
  - Diarrhoea [Not Recovered/Not Resolved]
  - Anorectal discomfort [Not Recovered/Not Resolved]
  - Anal pruritus [Not Recovered/Not Resolved]
  - Pruritus [Not Recovered/Not Resolved]
  - Nausea [Unknown]
  - Suicidal ideation [Recovered/Resolved]
  - Benign prostatic hyperplasia [Unknown]
  - Erectile dysfunction [Unknown]
  - Dehydration [Not Recovered/Not Resolved]
  - Dyspnoea [Unknown]
